FAERS Safety Report 13950003 (Version 3)
Quarter: 2017Q3

REPORT INFORMATION
  Report Type: Spontaneous
  Country: US (occurrence: US)
  Receive Date: 20170908
  Receipt Date: 20170921
  Transmission Date: 20171128
  Serious: Yes (Hospitalization, Other)
  Sender: FDA-Public Use
  Company Number: US-SAOL THERAPEUTICS-2017SAO01419

PATIENT
  Age: 18 Year
  Sex: Male

DRUGS (4)
  1. LIORESAL [Suspect]
     Active Substance: BACLOFEN
     Indication: MUSCLE SPASTICITY
     Dosage: 414.6 ?G, \DAY
     Route: 037
     Dates: start: 20170825
  2. LIORESAL [Suspect]
     Active Substance: BACLOFEN
     Indication: SPINAL CORD INJURY
  3. LIORESAL [Suspect]
     Active Substance: BACLOFEN
     Indication: SPINAL CORD INJURY
  4. LIORESAL [Suspect]
     Active Substance: BACLOFEN
     Indication: MUSCLE SPASTICITY
     Dosage: 415.45 ?G, \DAY
     Route: 037
     Dates: end: 20170825

REACTIONS (18)
  - Urosepsis [Unknown]
  - Dystonia [Unknown]
  - Hepatic enzyme increased [Unknown]
  - Tachycardia [Unknown]
  - Tremor [Unknown]
  - Small intestinal obstruction [Unknown]
  - Device dislocation [Unknown]
  - Urinary tract infection [Recovered/Resolved]
  - Malaise [Not Recovered/Not Resolved]
  - Blood urine present [Not Recovered/Not Resolved]
  - Hyperhidrosis [Unknown]
  - Blood pressure systolic increased [Unknown]
  - Nephrolithiasis [Not Recovered/Not Resolved]
  - Muscle spasticity [Unknown]
  - Seizure [Unknown]
  - Muscle spasms [Unknown]
  - Somnolence [Recovering/Resolving]
  - Muscle tightness [Unknown]

NARRATIVE: CASE EVENT DATE: 201708
